FAERS Safety Report 8235003-2 (Version None)
Quarter: 2012Q1

REPORT INFORMATION
  Report Type: 
  Country: None (occurrence: None)
  Receive Date: 20120326
  Receipt Date: 20120321
  Transmission Date: 20120608
  Serious: Yes (Hospitalization, Other)
  Sender: FDA-Public Use
  Company Number: US-BAYER-2011-062926

PATIENT
  Age: 16 Year
  Sex: Female
  Weight: 52 kg

DRUGS (10)
  1. IRON COMPLEX [Concomitant]
     Indication: ANAEMIA
     Dosage: UNK
     Route: 048
     Dates: start: 20060830, end: 20090701
  2. ZOFRAN [Concomitant]
  3. ZYRTEC [Concomitant]
  4. YAZ [Suspect]
     Indication: ACNE
     Dosage: UNK
     Route: 048
     Dates: start: 20081201, end: 20091001
  5. YAZ [Suspect]
     Indication: MENSTRUATION IRREGULAR
  6. PROTONIX [Concomitant]
     Dosage: 20 MG, UNK
  7. CLARITIN [Concomitant]
     Indication: MULTIPLE ALLERGIES
     Dosage: UNK
     Route: 048
     Dates: start: 20060830, end: 20090709
  8. YAZ [Suspect]
     Indication: MIGRAINE
  9. CLARITIN [Concomitant]
     Dosage: 5 MG, UNK
     Route: 048
  10. MOTRIN [Concomitant]
     Dosage: 800 MG, UNK
     Route: 048

REACTIONS (7)
  - PANCREATITIS [None]
  - BILIARY DYSKINESIA [None]
  - PAIN [None]
  - POST CHOLECYSTECTOMY SYNDROME [None]
  - ANXIETY [None]
  - POST-TRAUMATIC STRESS DISORDER [None]
  - DEPRESSION [None]
